FAERS Safety Report 22064444 (Version 2)
Quarter: 2023Q1

REPORT INFORMATION
  Report Type: Other
  Country: FR (occurrence: FR)
  Receive Date: 20230306
  Receipt Date: 20230309
  Transmission Date: 20230417
  Serious: Yes (Other)
  Sender: FDA-Public Use
  Company Number: None

PATIENT
  Age: 69 Year
  Sex: Female

DRUGS (1)
  1. PADCEV [Suspect]
     Active Substance: ENFORTUMAB VEDOTIN-EJFV
     Indication: Renal cancer
     Dosage: UNK UNK, UNKNOWN FREQ.
     Route: 042
     Dates: start: 20221014

REACTIONS (2)
  - Lichenoid keratosis [Not Recovered/Not Resolved]
  - Product use in unapproved indication [Unknown]

NARRATIVE: CASE EVENT DATE: 20221014
